FAERS Safety Report 10745831 (Version 1)
Quarter: 2015Q1

REPORT INFORMATION
  Report Type: Spontaneous
  Country: SA (occurrence: None)
  Receive Date: 20150127
  Receipt Date: 20150127
  Transmission Date: 20150721
  Serious: Yes (Other)
  Sender: FDA-Public Use
  Company Number: None

PATIENT
  Age: 28 Year
  Sex: Male
  Weight: 70 kg

DRUGS (2)
  1. CLARINASE [Suspect]
     Active Substance: LORATADINE\PSEUDOEPHEDRINE SULFATE
     Indication: NASAL CONGESTION
     Dosage: 1 PILL, ONCE, TAKEN BY MOUTH
     Route: 048
     Dates: start: 20150126, end: 20150126
  2. CLARINASE [Suspect]
     Active Substance: LORATADINE\PSEUDOEPHEDRINE SULFATE
     Indication: NASOPHARYNGITIS
     Dosage: 1 PILL, ONCE, TAKEN BY MOUTH
     Route: 048
     Dates: start: 20150126, end: 20150126

REACTIONS (3)
  - Anorgasmia [None]
  - Ejaculation disorder [None]
  - Drug ineffective [None]

NARRATIVE: CASE EVENT DATE: 20150126
